FAERS Safety Report 20570275 (Version 1)
Quarter: 2022Q1

REPORT INFORMATION
  Report Type: Spontaneous
  Country: CA (occurrence: CA)
  Receive Date: 20220309
  Receipt Date: 20220309
  Transmission Date: 20220423
  Serious: Yes (Hospitalization)
  Sender: FDA-Public Use
  Company Number: CA-TEVA-2022-CA-2013481

PATIENT
  Age: 41 Year
  Sex: Female

DRUGS (2)
  1. IBUPROFEN [Suspect]
     Active Substance: IBUPROFEN
     Route: 065
  2. JARDIANCE [Suspect]
     Active Substance: EMPAGLIFLOZIN
     Dosage: 25 MILLIGRAM DAILY;
     Route: 065

REACTIONS (5)
  - Acute kidney injury [Unknown]
  - Euglycaemic diabetic ketoacidosis [Unknown]
  - Hypophagia [Unknown]
  - Nausea [Unknown]
  - Vomiting [Unknown]
